FAERS Safety Report 5766197-6 (Version None)
Quarter: 2008Q2

REPORT INFORMATION
  Report Type: 
  Country: None (occurrence: None)
  Receive Date: 20080605
  Receipt Date: 20080519
  Transmission Date: 20081010
  Serious: Yes (Life-Threatening, Hospitalization)
  Sender: FDA-Public Use
  Company Number: 2008000638

PATIENT
  Age: 64 Year
  Sex: Male

DRUGS (14)
  1. TARCEVA [Suspect]
     Indication: LUNG ADENOCARCINOMA
     Dosage: (150 MG, QD), ORAL
     Route: 048
     Dates: start: 20080303, end: 20080310
  2. BEVACIZUMAB [Suspect]
     Dosage: (1275 MG), INTRAVENOUS
     Route: 042
     Dates: start: 20071210, end: 20071231
  3. GEMCITABINE [Concomitant]
  4. CARBOPLATIN [Concomitant]
  5. DEXAMETHASONE TAB [Concomitant]
  6. DOMPERIDONE (DOMPERIDONE) [Concomitant]
  7. GRANISETRON  HCL [Concomitant]
  8. BISACODYL (BISACODYL) [Concomitant]
  9. INTRAVENOUS ANTIBIOTICS (ANTIBIOTICS) [Concomitant]
  10. BACTRIM [Concomitant]
  11. CASPOFUNGIN (CASPOFUNGIN) [Concomitant]
  12. FLUCONAZOLE [Concomitant]
  13. METHYLPREDNISOLONE [Concomitant]
  14. NOREPINEPHRINE BITARTRATE [Concomitant]

REACTIONS (15)
  - ACIDOSIS [None]
  - HAEMODIALYSIS [None]
  - HYPOALBUMINAEMIA [None]
  - HYPOTENSION [None]
  - LEUKOCYTOSIS [None]
  - LUNG CONSOLIDATION [None]
  - MUCOSAL INFLAMMATION [None]
  - NEUTROPHIL COUNT DECREASED [None]
  - PERIPHERAL CIRCULATORY FAILURE [None]
  - PNEUMONITIS [None]
  - RASH [None]
  - RENAL IMPAIRMENT [None]
  - STOMATITIS [None]
  - TRANSAMINASES INCREASED [None]
  - VASODILATATION [None]
